FAERS Safety Report 10109804 (Version 2)
Quarter: 2014Q2

REPORT INFORMATION
  Report Type: Spontaneous
  Country: US (occurrence: US)
  Receive Date: 20140425
  Receipt Date: 20140505
  Transmission Date: 20141212
  Serious: No
  Sender: FDA-Public Use
  Company Number: US-009507513-1404USA010496

PATIENT
  Age: 46 Year
  Sex: Female

DRUGS (2)
  1. NASONEX [Suspect]
     Indication: UPPER RESPIRATORY TRACT INFECTION
     Dosage: 50 MCG/1-2 SPRAYS TWICE DAILY
     Route: 045
     Dates: start: 20140412, end: 20140417
  2. NASONEX [Suspect]
     Indication: SEASONAL ALLERGY

REACTIONS (6)
  - Drug hypersensitivity [Recovered/Resolved]
  - Oropharyngeal pain [Recovered/Resolved]
  - Swollen tongue [Recovered/Resolved]
  - Lip swelling [Recovered/Resolved]
  - Dysgeusia [Unknown]
  - Drug ineffective [Unknown]
